FAERS Safety Report 9459483 (Version 1)
Quarter: 2013Q3

REPORT INFORMATION
  Report Type: Spontaneous
  Country: US (occurrence: US)
  Receive Date: 20130815
  Receipt Date: 20130815
  Transmission Date: 20140515
  Serious: No
  Sender: FDA-Public Use
  Company Number: US-BAYER-2013-097867

PATIENT
  Sex: Male
  Weight: 76 kg

DRUGS (3)
  1. BETASERON [Suspect]
     Dosage: 0.25 MG, QOD
     Route: 058
  2. PROVIGIL [Concomitant]
  3. TIZANIDINE [Concomitant]

REACTIONS (1)
  - Musculoskeletal stiffness [Unknown]
